FAERS Safety Report 4267097-3 (Version None)
Quarter: 2004Q1

REPORT INFORMATION
  Report Type: 
  Country: None (occurrence: None)
  Receive Date: 20040107
  Receipt Date: 20031226
  Transmission Date: 20041129
  Serious: Yes (Death, Hospitalization, Other)
  Sender: FDA-Public Use
  Company Number: 2012272

PATIENT
  Age: 42 Year
  Sex: Male
  Weight: 93 kg

DRUGS (15)
  1. OXYCONTIN [Suspect]
     Dosage: SEE IMAGE
  2. DIAZEPAM [Suspect]
  3. OXAZEPAM [Suspect]
  4. TEMAZEPAM [Suspect]
  5. LORAZEPAM [Suspect]
  6. CANNABNOIDS (CANNABIS) [Suspect]
  7. DIPHENHYDRAMINE HCL [Suspect]
  8. GABAPENTIN [Suspect]
  9. CLARITIN [Concomitant]
  10. ZOLOFT [Concomitant]
  11. ALTACE [Concomitant]
  12. ALLOPURINOL [Concomitant]
  13. DEPAKOTE [Concomitant]
  14. SOMA [Concomitant]
  15. RELAFEN [Concomitant]

REACTIONS (6)
  - ACCIDENTAL OVERDOSE [None]
  - BACK PAIN [None]
  - DRUG ABUSER [None]
  - HAEMATEMESIS [None]
  - HEADACHE [None]
  - RESPIRATORY ARREST [None]
